FAERS Safety Report 17115812 (Version 1)
Quarter: 2019Q4

REPORT INFORMATION
  Report Type: Spontaneous
  Country: JP (occurrence: JP)
  Receive Date: 20191205
  Receipt Date: 20191205
  Transmission Date: 20200122
  Serious: Yes (Hospitalization, Other)
  Sender: FDA-Public Use
  Company Number: JP-009507513-1911JPN003518J

PATIENT
  Age: 56 Year
  Sex: Male

DRUGS (3)
  1. PITAVASTATIN CALCIUM [Concomitant]
     Active Substance: PITAVASTATIN CALCIUM
     Indication: DYSLIPIDAEMIA
     Dosage: 1 MILLIGRAM, UNKNOWN
     Route: 065
  2. LIPOVAS TABLETS 5 [Suspect]
     Active Substance: PRAVASTATIN SODIUM
     Indication: DYSLIPIDAEMIA
     Dosage: 5 MILLIGRAM, UNKNOWN
     Route: 048
  3. PRAVASTATIN SODIUM. [Concomitant]
     Active Substance: PRAVASTATIN SODIUM
     Indication: DYSLIPIDAEMIA
     Dosage: 10 MILLIGRAM, UNKNOWN
     Route: 065

REACTIONS (1)
  - Necrotising myositis [Recovering/Resolving]
